FAERS Safety Report 20226578 (Version 1)
Quarter: 2021Q4

REPORT INFORMATION
  Report Type: Report from Study
  Country: CO (occurrence: CO)
  Receive Date: 20211224
  Receipt Date: 20211224
  Transmission Date: 20220303
  Serious: Yes (Hospitalization, Other)
  Sender: FDA-Public Use
  Company Number: CO-ABBVIE-21K-036-4211480-00

PATIENT
  Age: 68 Year
  Sex: Female

DRUGS (1)
  1. VENCLEXTA [Suspect]
     Active Substance: VENETOCLAX
     Indication: Acute myeloid leukaemia
     Route: 048
     Dates: start: 20211117

REACTIONS (5)
  - Malaise [Recovering/Resolving]
  - Discouragement [Recovering/Resolving]
  - Tachycardia [Recovering/Resolving]
  - Feeling abnormal [Recovering/Resolving]
  - Haemoglobin decreased [Recovering/Resolving]

NARRATIVE: CASE EVENT DATE: 20211219
